FAERS Safety Report 18887210 (Version 1)
Quarter: 2021Q1

REPORT INFORMATION
  Report Type: Spontaneous
  Country: US (occurrence: US)
  Receive Date: 20210212
  Receipt Date: 20210212
  Transmission Date: 20210420
  Serious: No
  Sender: FDA-Public Use
  Company Number: US-009507513-2102USA004326

PATIENT
  Age: 37 Year
  Sex: Female

DRUGS (20)
  1. PRINIVIL [Suspect]
     Active Substance: LISINOPRIL
     Indication: NONALCOHOLIC FATTY LIVER DISEASE
     Dosage: 40 MILLIGRAM, QD
     Route: 048
  2. METFORMIN [Concomitant]
     Active Substance: METFORMIN HYDROCHLORIDE
     Indication: SLEEP APNOEA SYNDROME
  3. PRINIVIL [Suspect]
     Active Substance: LISINOPRIL
     Indication: DIABETES MELLITUS
     Dosage: 20 MILLIGRAM
     Route: 048
  4. FENOFIBRATE. [Concomitant]
     Active Substance: FENOFIBRATE
     Indication: NONALCOHOLIC FATTY LIVER DISEASE
  5. PRINIVIL [Suspect]
     Active Substance: LISINOPRIL
     Indication: PARTIAL LIPODYSTROPHY
  6. INSULIN [Concomitant]
     Active Substance: INSULIN NOS
     Indication: NONALCOHOLIC FATTY LIVER DISEASE
     Dosage: 110 IU INTERNATIONAL UNIT(S), QPM
  7. METFORMIN [Concomitant]
     Active Substance: METFORMIN HYDROCHLORIDE
     Indication: DIABETES MELLITUS
     Dosage: 100 MILLIGRAM, BID
  8. METFORMIN [Concomitant]
     Active Substance: METFORMIN HYDROCHLORIDE
     Indication: PARTIAL LIPODYSTROPHY
  9. FENOFIBRATE. [Concomitant]
     Active Substance: FENOFIBRATE
     Indication: DIABETES MELLITUS
     Dosage: 145 MILLIGRAM
  10. FENOFIBRATE. [Concomitant]
     Active Substance: FENOFIBRATE
     Indication: PARTIAL LIPODYSTROPHY
  11. FISH OIL [Concomitant]
     Active Substance: FISH OIL
     Indication: NONALCOHOLIC FATTY LIVER DISEASE
  12. PRINIVIL [Suspect]
     Active Substance: LISINOPRIL
     Indication: SLEEP APNOEA SYNDROME
  13. INSULIN [Concomitant]
     Active Substance: INSULIN NOS
     Indication: SLEEP APNOEA SYNDROME
  14. FENOFIBRATE. [Concomitant]
     Active Substance: FENOFIBRATE
     Indication: SLEEP APNOEA SYNDROME
  15. FISH OIL [Concomitant]
     Active Substance: FISH OIL
     Indication: DIABETES MELLITUS
     Dosage: 2 GRAM, BID
  16. FISH OIL [Concomitant]
     Active Substance: FISH OIL
     Indication: PARTIAL LIPODYSTROPHY
  17. INSULIN [Concomitant]
     Active Substance: INSULIN NOS
     Indication: DIABETES MELLITUS
     Dosage: 140 IU INTERNATIONAL UNIT(S), QAM
  18. INSULIN [Concomitant]
     Active Substance: INSULIN NOS
     Indication: PARTIAL LIPODYSTROPHY
  19. FISH OIL [Concomitant]
     Active Substance: FISH OIL
     Indication: SLEEP APNOEA SYNDROME
  20. METFORMIN [Concomitant]
     Active Substance: METFORMIN HYDROCHLORIDE
     Indication: NONALCOHOLIC FATTY LIVER DISEASE

REACTIONS (1)
  - Product use in unapproved indication [Unknown]
